FAERS Safety Report 4555135-X (Version None)
Quarter: 2005Q1

REPORT INFORMATION
  Report Type: 
  Country: None (occurrence: None)
  Receive Date: 20041228
  Receipt Date: 20040610
  Transmission Date: 20050727
  Serious: Yes (Other)
  Sender: FDA-Public Use
  Company Number: PHEH2004US06383

PATIENT
  Age: 49 Year
  Sex: Male

DRUGS (8)
  1. AREDIA (DISODIUIM PAMIDRONATE) [Suspect]
     Indication: MULTIPLE MYELOMA
     Dosage: 90 MG, QMO
     Dates: start: 19980422, end: 20011107
  2. AREDIA (DISODIUIM PAMIDRONATE) [Suspect]
     Indication: MULTIPLE MYELOMA
     Dosage: 90 MG, QMO
     Dates: start: 20020807, end: 20031001
  3. ZOMETA [Suspect]
     Indication: MULTIPLE MYELOMA
     Dosage: 4 MG, QMO
     Dates: start: 20011205, end: 20020703
  4. INTERFERON ALFA-2A [Concomitant]
  5. BEXTRA [Concomitant]
  6. NEURONTIN [Concomitant]
  7. DECADRON [Concomitant]
  8. DILAUDID [Concomitant]

REACTIONS (7)
  - OSTEOMYELITIS [None]
  - OSTEONECROSIS [None]
  - PAIN IN JAW [None]
  - SINUSITIS [None]
  - TOOTH ABSCESS [None]
  - TOOTH EXTRACTION [None]
  - WOUND DEBRIDEMENT [None]
